FAERS Safety Report 4322498-X (Version None)
Quarter: 2004Q1

REPORT INFORMATION
  Report Type: 
  Country: None (occurrence: None)
  Receive Date: 20040323
  Receipt Date: 20040323
  Transmission Date: 20041129
  Serious: Yes (Hospitalization)
  Sender: FDA-Public Use
  Company Number: None

PATIENT
  Age: 31 Year
  Sex: Female
  Weight: 61.2356 kg

DRUGS (3)
  1. LEXAPRO [Suspect]
     Indication: DEPRESSION
     Dates: start: 20021018, end: 20021201
  2. AMBIEN [Concomitant]
  3. XANAX [Concomitant]

REACTIONS (10)
  - ANXIETY [None]
  - CONFUSIONAL STATE [None]
  - DEPRESSION [None]
  - DYSKINESIA [None]
  - FEELING ABNORMAL [None]
  - INDIFFERENCE [None]
  - NECK PAIN [None]
  - NIGHT SWEATS [None]
  - SLEEP DISORDER [None]
  - SUICIDE ATTEMPT [None]
